FAERS Safety Report 7730440-4 (Version None)
Quarter: 2011Q3

REPORT INFORMATION
  Report Type: 
  Country: None (occurrence: None)
  Receive Date: 20110906
  Receipt Date: 20110825
  Transmission Date: 20111222
  Serious: Yes (Hospitalization)
  Sender: FDA-Public Use
  Company Number: PHHY2011CH75946

PATIENT
  Age: 57 Year
  Sex: Male

DRUGS (12)
  1. TAXOTERE [Concomitant]
     Indication: BRONCHIAL CARCINOMA
     Dosage: UNK UKN, UNK
     Dates: start: 20110707
  2. SOTIS [Concomitant]
     Dosage: 20 MG, DAILY
     Route: 048
     Dates: end: 20110715
  3. ACETAMINOPHEN [Concomitant]
     Dosage: 4 G, DAILY
     Route: 048
     Dates: end: 20110715
  4. CISPLATIN [Suspect]
     Indication: BRONCHIAL CARCINOMA
     Dosage: 140 MG DAILY
     Route: 048
     Dates: start: 20110707, end: 20110707
  5. PANTOPRAZOLE [Concomitant]
     Dosage: 40 MG, DAILY
     Route: 048
  6. ATACAND HCT [Concomitant]
     Dosage: 1 DF, DAILY
     Route: 048
     Dates: end: 20110715
  7. NOVALGIN [Concomitant]
     Indication: ANALGESIC THERAPY
     Dosage: UNK UKN, UNK
     Dates: start: 20110713
  8. TRAMADOL HYDROCHLORIDE [Concomitant]
     Indication: ANALGESIC THERAPY
     Dosage: UNK UKN, UNK
     Dates: start: 20110713
  9. AMLODIPINE [Concomitant]
     Dosage: 5 MG, UNK
     Route: 048
     Dates: end: 20110715
  10. VOLTAREN [Suspect]
     Indication: ANALGESIC THERAPY
     Dosage: 150 MG, DAILY
     Route: 048
     Dates: start: 20110713, end: 20110715
  11. MEMANTINE HYDROCHLORIDE [Concomitant]
     Dosage: 20 MG, DAILY
     Route: 048
     Dates: end: 20110715
  12. ASPIRIN [Concomitant]
     Dosage: 100 MG, DAILY
     Route: 048

REACTIONS (9)
  - DIARRHOEA [None]
  - RENAL IMPAIRMENT [None]
  - BLOOD CREATININE INCREASED [None]
  - BLOOD CALCIUM DECREASED [None]
  - GLOMERULAR FILTRATION RATE DECREASED [None]
  - HYPOCALCAEMIA [None]
  - VOMITING [None]
  - RENAL FAILURE ACUTE [None]
  - NAUSEA [None]
